FAERS Safety Report 8799030 (Version 1)
Quarter: 2012Q4

REPORT INFORMATION
  Report Type: 
  Country: IE (occurrence: IE)
  Receive Date: 20120920
  Receipt Date: 20120920
  Transmission Date: 20130627
  Serious: Yes (Other)
  Sender: FDA-Public Use
  Company Number: IE-ABBOTT-12P-229-0980017-00

PATIENT
  Sex: Male

DRUGS (1)
  1. CREON [Suspect]
     Indication: PRODUCT USED FOR UNKNOWN INDICATION
     Dosage: 25,000. 1 capsule with snack and 2 capsules with meals
     Route: 048
     Dates: start: 201205

REACTIONS (6)
  - Asthenia [Unknown]
  - Nausea [Unknown]
  - Diarrhoea [Unknown]
  - Abdominal distension [Unknown]
  - Flatulence [Unknown]
  - Pancreatitis acute [Unknown]
